FAERS Safety Report 8213459-9 (Version None)
Quarter: 2012Q1

REPORT INFORMATION
  Report Type: 
  Country: None (occurrence: None)
  Receive Date: 20120315
  Receipt Date: 20120308
  Transmission Date: 20120608
  Serious: Yes (Hospitalization, Other)
  Sender: FDA-Public Use
  Company Number: US-ABBOTT-12P-163-0903553-00

PATIENT
  Sex: Male
  Weight: 83.99 kg

DRUGS (1)
  1. HUMIRA [Suspect]
     Indication: COLITIS ULCERATIVE
     Dates: start: 20080101, end: 20100201

REACTIONS (10)
  - DRUG INEFFECTIVE [None]
  - THERAPEUTIC RESPONSE DECREASED [None]
  - COLITIS ULCERATIVE [None]
  - POLYP [None]
  - IMMUNOSUPPRESSION [None]
  - OFF LABEL USE [None]
  - FATIGUE [None]
  - ABSCESS [None]
  - WEIGHT DECREASED [None]
  - PROCEDURAL PAIN [None]
